FAERS Safety Report 8012067-2 (Version None)
Quarter: 2011Q4

REPORT INFORMATION
  Report Type: 
  Country: None (occurrence: None)
  Receive Date: 20111228
  Receipt Date: 20111214
  Transmission Date: 20120403
  Serious: Yes (Other)
  Sender: FDA-Public Use
  Company Number: US-MYLANLABS-2011S1025968

PATIENT
  Age: 51 Year
  Sex: Male

DRUGS (2)
  1. BUPIVACAINE HCL [Interacting]
     Indication: HERNIA REPAIR
     Dosage: 770MG TOTAL OVER 3 DAYS
  2. SIMVASTATIN [Suspect]
     Dosage: 20MG
     Route: 065

REACTIONS (5)
  - DIZZINESS [None]
  - DRUG INTERACTION [None]
  - HEPATOTOXICITY [None]
  - HYPERHIDROSIS [None]
  - HYPOTENSION [None]
